FAERS Safety Report 10753853 (Version 1)
Quarter: 2015Q1

REPORT INFORMATION
  Report Type: Spontaneous
  Country: US (occurrence: None)
  Receive Date: 20150129
  Receipt Date: 20150129
  Transmission Date: 20150721
  Serious: Yes (Hospitalization, Other)
  Sender: FDA-Public Use
  Company Number: 2015-US-000906

PATIENT
  Sex: Male

DRUGS (1)
  1. XYREM [Suspect]
     Active Substance: SODIUM OXYBATE
     Indication: SOMNOLENCE
     Route: 048
     Dates: start: 201311

REACTIONS (8)
  - Gastric bypass [None]
  - Skin operation [None]
  - Off label use [None]
  - Postoperative wound infection [None]
  - Pruritus [None]
  - Joint swelling [None]
  - Weight decreased [None]
  - Treatment noncompliance [None]
